FAERS Safety Report 4870365-5 (Version None)
Quarter: 2006Q1

REPORT INFORMATION
  Report Type: 
  Country: None (occurrence: None)
  Receive Date: 20060103
  Receipt Date: 20051222
  Transmission Date: 20060701
  Serious: Yes (Hospitalization)
  Sender: FDA-Public Use
  Company Number: US-JNJFOC-20051205579

PATIENT
  Sex: Female

DRUGS (23)
  1. INFLIXIMAB [Suspect]
     Indication: RHEUMATOID ARTHRITIS
     Route: 042
     Dates: start: 20030421
  2. OSCAL 500-D [Concomitant]
  3. OSCAL 500-D [Concomitant]
  4. ASPIRIN [Concomitant]
  5. AVAPRO [Concomitant]
  6. FLEXERIL [Concomitant]
  7. FOLIC ACID [Concomitant]
  8. METHOTREXATE [Concomitant]
  9. NASACORT [Concomitant]
  10. NITROGLYCERIN [Concomitant]
  11. PREDNISONE [Concomitant]
  12. PREVACID [Concomitant]
  13. SYNTHROID [Concomitant]
  14. TENORMIN [Concomitant]
  15. ULTRAM [Concomitant]
  16. MULTIVITAMIN [Concomitant]
  17. MULTIVITAMIN [Concomitant]
  18. MULTIVITAMIN [Concomitant]
  19. MULTIVITAMIN [Concomitant]
  20. MULTIVITAMIN [Concomitant]
  21. MULTIVITAMIN [Concomitant]
  22. MULTIVITAMIN [Concomitant]
  23. MULTIVITAMIN [Concomitant]

REACTIONS (1)
  - RENAL ARTERY STENT PLACEMENT [None]
